FAERS Safety Report 21638399 (Version 1)
Quarter: 2022Q4

REPORT INFORMATION
  Report Type: Spontaneous
  Country: ES (occurrence: ES)
  Receive Date: 20221124
  Receipt Date: 20221124
  Transmission Date: 20230113
  Serious: Yes (Hospitalization)
  Sender: FDA-Public Use
  Company Number: ES-JNJFOC-20221114586

PATIENT
  Age: 43 Year
  Sex: Female
  Weight: 92 kg

DRUGS (22)
  1. ETOPOSIDE [Suspect]
     Active Substance: ETOPOSIDE
     Indication: Plasma cell leukaemia
     Dosage: UNK
     Route: 065
     Dates: start: 20210310, end: 20210703
  2. ETOPOSIDE [Suspect]
     Active Substance: ETOPOSIDE
     Dosage: UNK
     Route: 065
     Dates: start: 20190919
  3. VINCRISTINE SULFATE [Suspect]
     Active Substance: VINCRISTINE SULFATE
     Indication: Plasma cell leukaemia
     Route: 065
     Dates: start: 20210310, end: 20210703
  4. PREDNISONE [Suspect]
     Active Substance: PREDNISONE
     Indication: Plasma cell leukaemia
     Route: 065
     Dates: start: 20210310, end: 20210703
  5. DOXORUBICIN [Suspect]
     Active Substance: DOXORUBICIN
     Indication: Plasma cell leukaemia
     Route: 065
     Dates: start: 20210310, end: 20210703
  6. DARZALEX [Suspect]
     Active Substance: DARATUMUMAB
     Indication: Plasma cell leukaemia
     Route: 065
     Dates: start: 20210115
  7. THALIDOMIDE [Suspect]
     Active Substance: THALIDOMIDE
     Indication: Plasma cell leukaemia
     Route: 065
     Dates: start: 20190919
  8. DEXAMETHASONE [Suspect]
     Active Substance: DEXAMETHASONE
     Indication: Plasma cell leukaemia
     Route: 065
     Dates: start: 20190919
  9. CYCLOPHOSPHAMIDE [Suspect]
     Active Substance: CYCLOPHOSPHAMIDE
     Indication: Plasma cell leukaemia
     Route: 065
     Dates: start: 20210310, end: 20210703
  10. VELCADE [Suspect]
     Active Substance: BORTEZOMIB
     Indication: Plasma cell leukaemia
     Route: 065
     Dates: start: 20190919
  11. ALLOPURINOL [Suspect]
     Active Substance: ALLOPURINOL
     Indication: Plasma cell leukaemia
     Route: 065
     Dates: start: 20200108
  12. PLATINUM [Suspect]
     Active Substance: PLATINUM
     Indication: Plasma cell leukaemia
     Route: 065
     Dates: start: 20190919
  13. LENALIDOMIDE [Suspect]
     Active Substance: LENALIDOMIDE
     Indication: Plasma cell leukaemia
     Dosage: 5 MG, DAILY
     Route: 065
     Dates: end: 20211212
  14. FOLIC ACID [Concomitant]
     Active Substance: FOLIC ACID
  15. URSODIOL [Concomitant]
     Active Substance: URSODIOL
  16. OMEPRAZOLE [Concomitant]
     Active Substance: OMEPRAZOLE
  17. CITALOPRAM [Concomitant]
     Active Substance: CITALOPRAM HYDROBROMIDE
  18. SULFAMETHOXAZOLE\TRIMETHOPRIM [Concomitant]
     Active Substance: SULFAMETHOXAZOLE\TRIMETHOPRIM
  19. FENTANYL [Concomitant]
     Active Substance: FENTANYL
  20. GABAPENTIN [Concomitant]
     Active Substance: GABAPENTIN
  21. ACYCLOVIR [Concomitant]
     Active Substance: ACYCLOVIR
  22. LORMETAZEPAM [Concomitant]
     Active Substance: LORMETAZEPAM

REACTIONS (2)
  - Bone disorder [Unknown]
  - Neoplasm progression [Unknown]
